FAERS Safety Report 5638486-7 (Version None)
Quarter: 2008Q1

REPORT INFORMATION
  Report Type: 
  Country: None (occurrence: None)
  Receive Date: 20080226
  Receipt Date: 20070404
  Transmission Date: 20080703
  Serious: No
  Sender: FDA-Public Use
  Company Number: A0636136A

PATIENT
  Age: 58 Year
  Sex: Female

DRUGS (19)
  1. IMITREX [Suspect]
     Indication: MIGRAINE
     Dosage: 1INJ AS REQUIRED
     Route: 058
     Dates: start: 20020101
  2. LEXAPRO [Concomitant]
  3. PROTONIX [Concomitant]
  4. TRIAMTERENE AND HYDROCHLOROTHIAZIDE [Concomitant]
  5. POTASSIUM CHLORIDE [Concomitant]
  6. SUCRALFATE [Concomitant]
  7. COLAZAL [Concomitant]
  8. SKELAXIN [Concomitant]
  9. VYTORIN [Concomitant]
  10. FOSAMAX [Concomitant]
  11. KETOTIFEN FUMARATE [Concomitant]
  12. TRAMADOL HCL [Concomitant]
  13. LORTAB [Concomitant]
  14. DOXEPIN HCL [Concomitant]
  15. PROMETHAZINE [Concomitant]
  16. VALIUM [Concomitant]
  17. DOXIDAN [Concomitant]
  18. CYCLOBENZAPRINE HCL [Concomitant]
  19. HYDROXYZINE [Concomitant]

REACTIONS (2)
  - DRUG INEFFECTIVE [None]
  - PHARMACEUTICAL PRODUCT COMPLAINT [None]
